FAERS Safety Report 9187089 (Version 2)
Quarter: 2013Q2

REPORT INFORMATION
  Report Type: Report from Study
  Country: US (occurrence: US)
  Receive Date: 20130325
  Receipt Date: 20130404
  Transmission Date: 20140414
  Serious: Yes (Other)
  Sender: FDA-Public Use
  Company Number: US-ROCHE-1203003

PATIENT
  Age: 42 Year
  Sex: Female

DRUGS (8)
  1. PEG-INTERFERON ALFA 2A [Suspect]
     Indication: CHRONIC HEPATITIS C
     Route: 058
     Dates: start: 20130218
  2. RIBAVIRIN [Suspect]
     Indication: CHRONIC HEPATITIS C
     Route: 048
     Dates: start: 20130218
  3. PEG-INTERFERON [Suspect]
     Indication: CHRONIC HEPATITIS C
     Route: 058
     Dates: start: 20130218
  4. DACLATASVIR [Suspect]
     Indication: CHRONIC HEPATITIS C
     Route: 048
     Dates: start: 20130218
  5. CITALOPRAM [Concomitant]
     Route: 065
  6. HYDROCORTISONE [Concomitant]
     Route: 065
     Dates: start: 20130226, end: 20130314
  7. ACETAMINOPHEN [Concomitant]
     Route: 065
     Dates: start: 20130226, end: 20130227
  8. LORATADINE [Concomitant]
     Dosage: ALTERNATE DAYS AND AS NEEDED
     Route: 065
     Dates: end: 20130304

REACTIONS (4)
  - Hyperbilirubinaemia [Recovering/Resolving]
  - Alanine aminotransferase increased [None]
  - Aspartate aminotransferase increased [None]
  - Blood alkaline phosphatase increased [None]
